FAERS Safety Report 13395835 (Version 1)
Quarter: 2017Q2

REPORT INFORMATION
  Report Type: Report from Study
  Country: CZ (occurrence: CZ)
  Receive Date: 20170403
  Receipt Date: 20170403
  Transmission Date: 20170830
  Serious: Yes (Hospitalization, Other)
  Sender: FDA-Public Use
  Company Number: CZ-JNJFOC-20170333438

PATIENT
  Age: 82 Year
  Sex: Female

DRUGS (1)
  1. SIMPONI [Suspect]
     Active Substance: GOLIMUMAB
     Indication: RHEUMATOID ARTHRITIS
     Route: 058
     Dates: start: 20101018, end: 20160920

REACTIONS (4)
  - Pyelonephritis [Unknown]
  - Abscess limb [Unknown]
  - Skin ulcer [Recovering/Resolving]
  - Fistula [Unknown]

NARRATIVE: CASE EVENT DATE: 20161003
